FAERS Safety Report 23235724 (Version 2)
Quarter: 2023Q4

REPORT INFORMATION
  Report Type: Other
  Country: CL (occurrence: None)
  Receive Date: 20231128
  Receipt Date: 20231212
  Transmission Date: 20240109
  Serious: Yes (Hospitalization)
  Sender: FDA-Public Use
  Company Number: CL-ROCHE-3462029

PATIENT
  Age: 60 Year
  Sex: Female

DRUGS (1)
  1. HERCEPTIN [Suspect]
     Active Substance: TRASTUZUMAB
     Indication: Breast cancer metastatic
     Dosage: DATE OF THE LAST ADMINISTRATION: 10/NOV/2023
     Route: 058
     Dates: start: 20230706

REACTIONS (3)
  - Pneumonia [Unknown]
  - Feeling abnormal [Unknown]
  - Chest pain [Unknown]
